FAERS Safety Report 26147578 (Version 1)
Quarter: 2025Q4

REPORT INFORMATION
  Report Type: Spontaneous
  Country: EU (occurrence: EU)
  Receive Date: 20251211
  Receipt Date: 20251211
  Transmission Date: 20260118
  Serious: Yes (Death, Other)
  Sender: JOHNSON AND JOHNSON
  Company Number: EU-BAYER-2025A161111

PATIENT
  Age: 77 Year
  Sex: Male
  Weight: 77 kg

DRUGS (22)
  1. BOSENTAN [Suspect]
     Active Substance: BOSENTAN
     Indication: Product used for unknown indication
     Dosage: TOTAL DAILY DOSE 250
     Route: 048
     Dates: start: 20240430, end: 20250527
  2. VENTAVIS [Suspect]
     Active Substance: ILOPROST
     Indication: Pulmonary arterial hypertension
     Dosage: TOTAL DAILY DOSE 120
     Route: 055
  3. UPTRAVI [Suspect]
     Active Substance: SELEXIPAG
     Indication: Product used for unknown indication
     Dosage: UNK
  4. UPTRAVI [Suspect]
     Active Substance: SELEXIPAG
     Dosage: 2000
     Dates: start: 20250220, end: 20250730
  5. UPTRAVI [Suspect]
     Active Substance: SELEXIPAG
     Dosage: DOSE : 1600
     Dates: start: 20250121, end: 20250220
  6. UPTRAVI [Suspect]
     Active Substance: SELEXIPAG
     Dosage: TOTAL DAILY DOSE 1200
     Dates: start: 20240918, end: 20250121
  7. UPTRAVI [Suspect]
     Active Substance: SELEXIPAG
     Dosage: TOTAL DAILY DOSE 400
     Dates: start: 20240704, end: 20240818
  8. UPTRAVI [Suspect]
     Active Substance: SELEXIPAG
     Dosage: TOTAL DAILY DOSE 800
     Dates: start: 20240818, end: 20240918
  9. OPSUMIT [Suspect]
     Active Substance: MACITENTAN
     Indication: Product used for unknown indication
     Dosage: TOTAL DAILY DOSE 10
     Route: 048
  10. REVATIO [Suspect]
     Active Substance: SILDENAFIL CITRATE
     Indication: Product used for unknown indication
     Dosage: TOTAL DAILY DOSE 60
     Route: 048
  11. FUROSEMIDE [Concomitant]
     Active Substance: FUROSEMIDE
     Indication: Cardiac failure
     Dosage: UNK
     Route: 048
  12. Sorbifer [Concomitant]
     Indication: Prophylaxis
     Dosage: UNK
     Route: 048
  13. AMIODARONE HYDROCHLORIDE [Concomitant]
     Active Substance: AMIODARONE HYDROCHLORIDE
     Indication: Atrial fibrillation
     Dosage: UNK
     Route: 048
     Dates: start: 20250523, end: 20250730
  14. JARDIANCE [Concomitant]
     Active Substance: EMPAGLIFLOZIN
     Indication: Diabetes mellitus
     Dosage: UNK
     Route: 048
  15. HYDROCHLOROTHIAZIDE [Concomitant]
     Active Substance: HYDROCHLOROTHIAZIDE
     Indication: Cardiac failure
     Dosage: UNK
     Route: 048
  16. ALLOPURINOL [Concomitant]
     Active Substance: ALLOPURINOL
     Indication: Gout
     Dosage: UNK
     Route: 048
  17. OMEPRAZOLE [Concomitant]
     Active Substance: OMEPRAZOLE
     Indication: Gastrointestinal disorder
     Dosage: UNK
     Route: 048
  18. ELIQUIS [Concomitant]
     Active Substance: APIXABAN
     Indication: Anticoagulant therapy
     Dosage: UNK
     Route: 048
  19. XARELTO [Concomitant]
     Active Substance: RIVAROXABAN
     Indication: Atrial fibrillation
     Dosage: UNK
     Route: 048
  20. Atrox [Concomitant]
     Indication: Hyperlipidaemia
     Dosage: UNK
     Route: 048
  21. POTASSIUM CHLORIDE [Concomitant]
     Active Substance: POTASSIUM CHLORIDE
     Indication: Hypokalaemia
     Dosage: UNK
     Route: 048
  22. TORSEMIDE [Concomitant]
     Active Substance: TORSEMIDE
     Indication: Cardiac failure
     Route: 048

REACTIONS (2)
  - Death [Fatal]
  - Pulmonary hypertension [Unknown]

NARRATIVE: CASE EVENT DATE: 20250730
